FAERS Safety Report 11273161 (Version 1)
Quarter: 2015Q3

REPORT INFORMATION
  Report Type: Spontaneous
  Country: US (occurrence: None)
  Receive Date: 20150714
  Receipt Date: 20150714
  Transmission Date: 20151125
  Serious: Yes (Hospitalization)
  Sender: FDA-Public Use
  Company Number: None

PATIENT
  Age: 57 Year
  Sex: Female
  Weight: 77.11 kg

DRUGS (7)
  1. AMYTRIPTALIN [Concomitant]
  2. MAGNESIUM [Concomitant]
     Active Substance: MAGNESIUM
  3. LEVOFLOXACIN 500MG JNJ [Suspect]
     Active Substance: LEVOFLOXACIN
     Indication: PYREXIA
     Route: 048
     Dates: start: 20150106, end: 20150112
  4. VITAMIN D [Concomitant]
     Active Substance: CHOLECALCIFEROL
  5. LEVOFLOXACIN 500MG JNJ [Suspect]
     Active Substance: LEVOFLOXACIN
     Indication: COUGH
     Route: 048
     Dates: start: 20150106, end: 20150112
  6. ALPHA LAPOIC ACID [Concomitant]
  7. VITAMIN B [Concomitant]
     Active Substance: VITAMIN B

REACTIONS (2)
  - Neuropathy peripheral [None]
  - Burning sensation [None]

NARRATIVE: CASE EVENT DATE: 20150106
